FAERS Safety Report 8341416-0 (Version None)
Quarter: 2012Q2

REPORT INFORMATION
  Report Type: 
  Country: None (occurrence: None)
  Receive Date: 20120507
  Receipt Date: 20120427
  Transmission Date: 20120825
  Serious: Yes (Hospitalization)
  Sender: FDA-Public Use
  Company Number: DE-BAYER-2012-041430

PATIENT
  Age: 54 Year
  Sex: Female

DRUGS (8)
  1. SORAFENIB (RAF KINASE INHIBITOR) [Suspect]
     Indication: BREAST CANCER METASTATIC
     Dosage: 400 MG, QD
     Dates: start: 20111114, end: 20120330
  2. PACLITAXEL [Suspect]
     Indication: BREAST CANCER METASTATIC
     Dosage: 80 MG/M2, QD
     Dates: start: 20111114, end: 20120402
  3. PANTOPRAZOLE [Concomitant]
     Dosage: TOTAL DAILY DOSE 40 MG
     Dates: start: 20120404
  4. RAMIPRIL [Concomitant]
     Dosage: TOTAL DAILY DOSE 10 MG
  5. AMLODIPINE [Concomitant]
     Dosage: TOTAL DAILY DOSE 5 MG
     Dates: start: 20120404
  6. CALCIUM [Concomitant]
     Dosage: TOTAL DAILY DOSE 500 MG
     Dates: start: 20120404
  7. BISOPROLOL FUMARATE [Concomitant]
     Dosage: TOTAL DAILY DOSE 2.5 MG
  8. METFORMIN HCL [Concomitant]
     Dosage: TOTAL DAILY DOSE 1700 MG

REACTIONS (2)
  - GENERAL PHYSICAL HEALTH DETERIORATION [None]
  - PANCYTOPENIA [None]
